FAERS Safety Report 10570455 (Version 1)
Quarter: 2014Q4

REPORT INFORMATION
  Report Type: Spontaneous
  Country: BR (occurrence: BR)
  Receive Date: 20141107
  Receipt Date: 20141107
  Transmission Date: 20150529
  Serious: Yes (Hospitalization, Other)
  Sender: FDA-Public Use
  Company Number: BR-SHIRE-BR201407508

PATIENT
  Age: 6 Year
  Sex: Male
  Weight: 28 kg

DRUGS (1)
  1. VENVANSE [Suspect]
     Active Substance: LISDEXAMFETAMINE DIMESYLATE
     Indication: ATTENTION DEFICIT/HYPERACTIVITY DISORDER
     Dosage: 30 MG, 1X/DAY:QD (IN THE MORNING)
     Route: 048
     Dates: start: 20141029, end: 20141029

REACTIONS (15)
  - Syncope [Recovered/Resolved]
  - Tachycardia [Not Recovered/Not Resolved]
  - Flatulence [Not Recovered/Not Resolved]
  - Incoherent [Not Recovered/Not Resolved]
  - Psychotic disorder [Not Recovered/Not Resolved]
  - Vomiting [Not Recovered/Not Resolved]
  - Asthenia [Not Recovered/Not Resolved]
  - Polydipsia [Not Recovered/Not Resolved]
  - Tongue oedema [Not Recovered/Not Resolved]
  - Dyskinesia [Not Recovered/Not Resolved]
  - Irritability [Not Recovered/Not Resolved]
  - Agitation [Not Recovered/Not Resolved]
  - Foaming at mouth [Not Recovered/Not Resolved]
  - Fatigue [Not Recovered/Not Resolved]
  - Diarrhoea [Not Recovered/Not Resolved]

NARRATIVE: CASE EVENT DATE: 20141029
